FAERS Safety Report 4918461-8 (Version None)
Quarter: 2006Q1

REPORT INFORMATION
  Report Type: 
  Country: None (occurrence: None)
  Receive Date: 20060214
  Receipt Date: 20060125
  Transmission Date: 20060701
  Serious: Yes (Hospitalization)
  Sender: FDA-Public Use
  Company Number: FR200601004661

PATIENT
  Age: 76 Year
  Sex: Female

DRUGS (2)
  1. FORTEO [Suspect]
     Indication: OSTEOPOROSIS
     Dosage: 20 UG DAILY (1/D) SUBCUTANEOUS
     Route: 058
     Dates: start: 20050318, end: 20051028
  2. FORTEO [Concomitant]

REACTIONS (3)
  - CARCINOMA IN SITU [None]
  - HYPERTENSION [None]
  - RENAL CELL CARCINOMA STAGE UNSPECIFIED [None]
